FAERS Safety Report 10342363 (Version 3)
Quarter: 2015Q1

REPORT INFORMATION
  Report Type: Spontaneous
  Country: US (occurrence: US)
  Receive Date: 20140725
  Receipt Date: 20150317
  Transmission Date: 20150720
  Serious: Yes (Other)
  Sender: FDA-Public Use
  Company Number: US-GLAXOSMITHKLINE-A1050301A

PATIENT
  Sex: Male

DRUGS (3)
  1. LAMICTAL XR [Suspect]
     Active Substance: LAMOTRIGINE
     Indication: EPILEPSY
     Route: 065
  2. LAMICTAL [Suspect]
     Active Substance: LAMOTRIGINE
     Indication: EPILEPSY
     Route: 065
     Dates: start: 2001
  3. LAMOTRIGINE. [Suspect]
     Active Substance: LAMOTRIGINE
     Indication: SEIZURE
     Dosage: 200 MG, U
     Route: 065
     Dates: start: 2009

REACTIONS (8)
  - Fatigue [Recovered/Resolved]
  - Adverse reaction [Unknown]
  - Drooling [Recovered/Resolved]
  - Drug ineffective [Unknown]
  - Tremor [Recovered/Resolved]
  - Dizziness [Recovered/Resolved]
  - Tongue movement disturbance [Recovered/Resolved]
  - Aphasia [Recovered/Resolved]
